FAERS Safety Report 23449068 (Version 2)
Quarter: 2024Q3

REPORT INFORMATION
  Report Type: Report from Study
  Country: JP (occurrence: JP)
  Receive Date: 20240128
  Receipt Date: 20240709
  Transmission Date: 20241017
  Serious: Yes (Other)
  Sender: GLAXOSMITHKLINE
  Company Number: JP-GLAXOSMITHKLINE-JP2023JPN091831

PATIENT

DRUGS (31)
  1. MEPOLIZUMAB [Suspect]
     Active Substance: MEPOLIZUMAB
     Indication: Eosinophilic granulomatosis with polyangiitis
     Dosage: 300 MG, Q4W
     Dates: start: 20180807, end: 20190806
  2. MEPOLIZUMAB [Suspect]
     Active Substance: MEPOLIZUMAB
     Dosage: 300 MG, Q6W
     Dates: start: 20190917, end: 20190917
  3. MEPOLIZUMAB [Suspect]
     Active Substance: MEPOLIZUMAB
     Dosage: 300 MG, Q4W
     Dates: start: 20191015
  4. FLUTICASONE FUROATE\VILANTEROL TRIFENATATE [Concomitant]
     Active Substance: FLUTICASONE FUROATE\VILANTEROL TRIFENATATE
     Indication: Eosinophilic granulomatosis with polyangiitis
     Dosage: 200 ?G, QD
     Route: 055
  5. PREDNISOLONE [Concomitant]
     Active Substance: PREDNISOLONE
     Indication: Eosinophilic granulomatosis with polyangiitis
     Dosage: 5 MG, QD
     Route: 048
     Dates: end: 20181002
  6. PREDNISOLONE [Concomitant]
     Active Substance: PREDNISOLONE
     Indication: Asthma
     Dosage: 4 MG, QD
     Route: 048
     Dates: start: 20181003, end: 20181204
  7. PREDNISOLONE [Concomitant]
     Active Substance: PREDNISOLONE
     Dosage: 10 MG, QD
     Route: 048
     Dates: start: 20181205, end: 20190108
  8. PREDNISOLONE [Concomitant]
     Active Substance: PREDNISOLONE
     Dosage: 9 MG, QD
     Route: 048
     Dates: start: 20190109, end: 20190212
  9. PREDNISOLONE [Concomitant]
     Active Substance: PREDNISOLONE
     Dosage: 8 MG, QD
     Route: 048
     Dates: start: 20190213, end: 20190312
  10. PREDNISOLONE [Concomitant]
     Active Substance: PREDNISOLONE
     Dosage: 7 MG, QD
     Route: 048
     Dates: start: 20190313, end: 20190917
  11. PREDNISOLONE [Concomitant]
     Active Substance: PREDNISOLONE
     Dosage: 6 MG, QD
     Route: 048
     Dates: start: 20190918, end: 20200407
  12. PREDNISOLONE [Concomitant]
     Active Substance: PREDNISOLONE
     Dosage: 26 MG, QD
     Route: 048
     Dates: start: 20200408, end: 20200413
  13. PREDNISOLONE [Concomitant]
     Active Substance: PREDNISOLONE
     Dosage: 6 MG, QD
     Route: 048
     Dates: start: 20200414
  14. PROGRAF [Concomitant]
     Active Substance: TACROLIMUS
     Indication: Eosinophilic granulomatosis with polyangiitis
     Dosage: 2 MG, QD
  15. CARBOCYSTEINE [Concomitant]
     Active Substance: CARBOCYSTEINE
     Indication: Eosinophilic granulomatosis with polyangiitis
     Dosage: UNK
  16. AMBROXOL HYDROCHLORIDE [Concomitant]
     Active Substance: AMBROXOL HYDROCHLORIDE
     Indication: Eosinophilic granulomatosis with polyangiitis
     Dosage: UNK
  17. SINGULAIR [Concomitant]
     Active Substance: MONTELUKAST SODIUM
     Indication: Eosinophilic granulomatosis with polyangiitis
     Dosage: UNK
  18. SPIRIVA [Concomitant]
     Active Substance: TIOTROPIUM BROMIDE MONOHYDRATE
     Indication: Eosinophilic granulomatosis with polyangiitis
     Dosage: UNK
  19. PROCATEROL HYDROCHLORIDE [Concomitant]
     Active Substance: PROCATEROL HYDROCHLORIDE
     Indication: Eosinophilic granulomatosis with polyangiitis
     Dosage: UNK
  20. ONEALFA [Concomitant]
     Active Substance: ALFACALCIDOL
     Dosage: UNK
  21. REBAMIPIDE [Concomitant]
     Active Substance: REBAMIPIDE
     Dosage: UNK
  22. METHYLCOBALAMIN [Concomitant]
     Active Substance: METHYLCOBALAMIN
     Dosage: UNK
  23. MINODRONIC ACID [Concomitant]
     Active Substance: MINODRONIC ACID
     Dosage: UNK
  24. RABEPRAZOLE SODIUM [Concomitant]
     Active Substance: RABEPRAZOLE SODIUM
     Dosage: UNK
  25. LIPITOR [Concomitant]
     Active Substance: ATORVASTATIN CALCIUM
     Dosage: UNK
  26. BISOPROLOL FUMARATE [Concomitant]
     Active Substance: BISOPROLOL FUMARATE
     Indication: Eosinophilic granulomatosis with polyangiitis
     Dosage: UNK
  27. ATOLANT [Concomitant]
     Dosage: UNK
  28. TANATRIL [Concomitant]
     Indication: Eosinophilic granulomatosis with polyangiitis
     Dosage: UNK
  29. POLARAMINE [Concomitant]
     Active Substance: DEXCHLORPHENIRAMINE MALEATE
     Indication: Rhinitis allergic
     Dosage: UNK
  30. EPHEDRA SINICA STEM\HERBALS [Concomitant]
     Active Substance: EPHEDRA SINICA STEM\HERBALS
     Indication: Rhinitis allergic
     Dosage: UNK
  31. MIYA-BM [Concomitant]
     Active Substance: CLOSTRIDIUM BUTYRICUM SPORES STRAIN M-55
     Indication: Eosinophilic granulomatosis with polyangiitis
     Dosage: UNK

REACTIONS (5)
  - Bronchitis [Recovering/Resolving]
  - Gastric ulcer [Recovering/Resolving]
  - Asthma [Recovering/Resolving]
  - Migraine [Recovering/Resolving]
  - Inappropriate schedule of product administration [Unknown]

NARRATIVE: CASE EVENT DATE: 20181204
